FAERS Safety Report 20876939 (Version 1)
Quarter: 2022Q2

REPORT INFORMATION
  Report Type: Report from Study
  Country: CA (occurrence: CA)
  Receive Date: 20220526
  Receipt Date: 20220526
  Transmission Date: 20220721
  Serious: Yes (Other)
  Sender: FDA-Public Use
  Company Number: None

PATIENT
  Age: 77 Year
  Sex: Female

DRUGS (8)
  1. METHOTREXATE [Suspect]
     Active Substance: METHOTREXATE
     Indication: Product used for unknown indication
     Route: 058
  2. ARAVA [Concomitant]
     Active Substance: LEFLUNOMIDE
     Indication: Product used for unknown indication
     Route: 065
  3. BISOPROLOL [Concomitant]
     Active Substance: BISOPROLOL
     Indication: Product used for unknown indication
     Dosage: 1 EVERY 1 DAYS
     Route: 048
  4. GABAPENTIN [Concomitant]
     Active Substance: GABAPENTIN
     Indication: Neuralgia
     Dosage: 1 EVERY 1 DAYS
     Route: 048
  5. HUMIRA [Concomitant]
     Active Substance: ADALIMUMAB
     Indication: Product used for unknown indication
     Dosage: 1 EVERY 1 WEEKS
     Route: 058
  6. IBUPROFEN [Concomitant]
     Active Substance: IBUPROFEN
     Indication: Product used for unknown indication
     Route: 048
  7. PANTOPRAZOLE [Concomitant]
     Active Substance: PANTOPRAZOLE
     Indication: Abdominal discomfort
     Dosage: 1 EVERY 1 DAYS
     Route: 065
  8. SYNTHROID [Concomitant]
     Active Substance: LEVOTHYROXINE SODIUM
     Indication: Product used for unknown indication
     Dosage: 1 EVERY 1 DAYS
     Route: 048

REACTIONS (2)
  - Hepatotoxicity [Unknown]
  - Product use issue [Unknown]
